FAERS Safety Report 12246414 (Version 2)
Quarter: 2017Q4

REPORT INFORMATION
  Report Type: Report from Study
  Country: None (occurrence: GB)
  Receive Date: 20160407
  Receipt Date: 20171127
  Transmission Date: 20180320
  Serious: Yes (Death, Hospitalization)
  Sender: FDA-Public Use
  Company Number: GB-ABBVIE-16K-167-1598128-00

PATIENT
  Age: 73 Year
  Sex: Male

DRUGS (1)
  1. HUMIRA [Suspect]
     Active Substance: ADALIMUMAB
     Indication: RHEUMATOID ARTHRITIS
     Route: 058
     Dates: start: 20050314, end: 20050615

REACTIONS (7)
  - Cerebrovascular accident [Fatal]
  - Acute kidney injury [Unknown]
  - Cardiac failure congestive [Fatal]
  - Type 2 diabetes mellitus [Fatal]
  - Myocardial ischaemia [Fatal]
  - Sepsis [Unknown]
  - Osteomyelitis [Unknown]

NARRATIVE: CASE EVENT DATE: 2007
